FAERS Safety Report 25831668 (Version 1)
Quarter: 2025Q3

REPORT INFORMATION
  Report Type: Spontaneous
  Country: US (occurrence: US)
  Receive Date: 20250922
  Receipt Date: 20250922
  Transmission Date: 20251021
  Serious: No
  Sender: SANOFI AVENTIS
  Company Number: US-SA-2025SA280073

PATIENT
  Age: 63 Year
  Sex: Female

DRUGS (1)
  1. DUPIXENT [Suspect]
     Active Substance: DUPILUMAB
     Indication: Neurodermatitis
     Dosage: 300 MG, QOW
     Route: 058

REACTIONS (11)
  - Sleep disorder [Unknown]
  - Weight increased [Unknown]
  - Nausea [Unknown]
  - Anxiety [Unknown]
  - Acne [Unknown]
  - Ocular hyperaemia [Unknown]
  - Dry eye [Unknown]
  - Eye pruritus [Unknown]
  - Headache [Unknown]
  - Pruritus [Unknown]
  - Therapeutic product effect decreased [Unknown]

NARRATIVE: CASE EVENT DATE: 20250901
